FAERS Safety Report 8407497-0 (Version None)
Quarter: 2012Q2

REPORT INFORMATION
  Report Type: 
  Country: None (occurrence: None)
  Receive Date: 20120323
  Receipt Date: 20110630
  Transmission Date: 20120825
  Serious: Yes (Hospitalization)
  Sender: FDA-Public Use
  Company Number: 163-21880-11051963

PATIENT
  Age: 63 Year
  Sex: Female

DRUGS (9)
  1. DECADRON [Concomitant]
  2. VELCADE [Concomitant]
  3. ASPIRIN [Concomitant]
  4. VERAPAMIL [Concomitant]
  5. DETROL LA [Concomitant]
  6. FROVA [Concomitant]
  7. REVLIMID [Suspect]
     Indication: MULTIPLE MYELOMA
     Dosage: 25 MG, DAILY X 21 DAYS, 7 DAYS OFF, PO 5 MG, M,W,F AFTER DIALYSIS, PO
     Route: 048
     Dates: start: 20110425, end: 20110502
  8. REVLIMID [Suspect]
     Indication: MULTIPLE MYELOMA
     Dosage: 25 MG, DAILY X 21 DAYS, 7 DAYS OFF, PO 5 MG, M,W,F AFTER DIALYSIS, PO
     Route: 048
     Dates: start: 20110512
  9. ALLOPURINOL [Concomitant]

REACTIONS (3)
  - BLOOD CREATININE INCREASED [None]
  - HEADACHE [None]
  - NAUSEA [None]
